FAERS Safety Report 15042413 (Version 1)
Quarter: 2018Q2

REPORT INFORMATION
  Report Type: Spontaneous
  Country: US (occurrence: US)
  Receive Date: 20180621
  Receipt Date: 20180621
  Transmission Date: 20180711
  Serious: No
  Sender: FDA-Public Use
  Company Number: US-ASTRAZENECA-2018SE76889

PATIENT
  Age: 64 Year
  Sex: Male
  Weight: 99.8 kg

DRUGS (1)
  1. BYDUREON BCISE [Suspect]
     Active Substance: EXENATIDE
     Indication: TYPE 2 DIABETES MELLITUS
     Route: 058
     Dates: start: 201804

REACTIONS (8)
  - Injection site swelling [Not Recovered/Not Resolved]
  - Vision blurred [Unknown]
  - Hyperhidrosis [Unknown]
  - Blood glucose decreased [Unknown]
  - Injection site nodule [Not Recovered/Not Resolved]
  - Dyspnoea [Unknown]
  - Injection site mass [Not Recovered/Not Resolved]
  - Wrong technique in product usage process [Unknown]

NARRATIVE: CASE EVENT DATE: 2018
